FAERS Safety Report 8229846-9 (Version None)
Quarter: 2012Q1

REPORT INFORMATION
  Report Type: 
  Country: None (occurrence: None)
  Receive Date: 20120323
  Receipt Date: 20120314
  Transmission Date: 20120608
  Serious: Yes (Other)
  Sender: FDA-Public Use
  Company Number: GB-ACCORD-011901

PATIENT
  Age: 28 Year
  Sex: Male

DRUGS (3)
  1. PIZOTIFEN [Concomitant]
  2. SUMATRIPTAN [Concomitant]
  3. TOPIRAMATE [Suspect]
     Indication: EPILEPSY
     Route: 048
     Dates: start: 20111118, end: 20120116

REACTIONS (1)
  - DENTAL CARIES [None]
